FAERS Safety Report 7345380-2 (Version None)
Quarter: 2011Q1

REPORT INFORMATION
  Report Type: 
  Country: None (occurrence: None)
  Receive Date: 20110310
  Receipt Date: 20110302
  Transmission Date: 20110831
  Serious: Yes (Hospitalization)
  Sender: FDA-Public Use
  Company Number: PHHY2010BR58820

PATIENT
  Age: 41 Year
  Sex: Female

DRUGS (2)
  1. TRILEPTAL [Suspect]
     Dosage: 300 MG, QD
     Route: 048
     Dates: start: 20100320
  2. REVIA [Concomitant]
     Dosage: UNK

REACTIONS (4)
  - CONVERSION DISORDER [None]
  - PARAPLEGIA [None]
  - PARAESTHESIA [None]
  - MUSCULAR WEAKNESS [None]
